FAERS Safety Report 10006312 (Version 1)
Quarter: 2014Q1

REPORT INFORMATION
  Report Type: Spontaneous
  Country: DE (occurrence: DE)
  Receive Date: 20140313
  Receipt Date: 20140313
  Transmission Date: 20141002
  Serious: Yes (Disabling)
  Sender: FDA-Public Use
  Company Number: DE-BEH-2014040992

PATIENT
  Sex: Male
  Weight: 75.6 kg

DRUGS (1)
  1. HIZENTRA [Suspect]
     Indication: BRUTON^S AGAMMAGLOBULINAEMIA
     Dosage: APPROX. 50 ML WEEKLY
     Route: 058

REACTIONS (1)
  - Splenomegaly [Recovered/Resolved with Sequelae]
